FAERS Safety Report 15145063 (Version 1)
Quarter: 2018Q3

REPORT INFORMATION
  Report Type: Spontaneous
  Country: US (occurrence: US)
  Receive Date: 20180713
  Receipt Date: 20180713
  Transmission Date: 20181010
  Serious: Yes (Other)
  Sender: FDA-Public Use
  Company Number: US-ACTELION-A-US2018-172585

PATIENT
  Age: 77 Year
  Sex: Male
  Weight: 71.66 kg

DRUGS (4)
  1. UPTRAVI [Suspect]
     Active Substance: SELEXIPAG
     Dosage: 400 MCG, BID
     Route: 048
  2. ELIQUIS [Concomitant]
     Active Substance: APIXABAN
  3. UPTRAVI [Suspect]
     Active Substance: SELEXIPAG
     Indication: PULMONARY HYPERTENSION
     Dosage: 200 MCG, BID
     Route: 048
  4. ADCIRCA [Concomitant]
     Active Substance: TADALAFIL

REACTIONS (12)
  - Arthralgia [Unknown]
  - Drug intolerance [Unknown]
  - Vomiting [Unknown]
  - Atrial fibrillation [Unknown]
  - Nausea [Unknown]
  - Deep vein thrombosis [Unknown]
  - Food intolerance [Unknown]
  - Pulmonary arterial hypertension [Unknown]
  - Fluid overload [Unknown]
  - Flushing [Unknown]
  - Hot flush [Unknown]
  - Diarrhoea [Unknown]
